FAERS Safety Report 9411840 (Version 1)
Quarter: 2013Q3

REPORT INFORMATION
  Report Type: Spontaneous
  Country: US (occurrence: US)
  Receive Date: 20130722
  Receipt Date: 20130722
  Transmission Date: 20140515
  Serious: Yes (Other)
  Sender: FDA-Public Use
  Company Number: US-PFIZER INC-2013210561

PATIENT
  Age: 69 Year
  Sex: Male
  Weight: 92.97 kg

DRUGS (3)
  1. VIAGRA [Suspect]
     Indication: ERECTILE DYSFUNCTION
     Dosage: UNK, AS NEEDED
     Dates: start: 2011
  2. ASPIRIN [Concomitant]
     Indication: PAIN
     Dosage: UNK
  3. ASPIRIN [Concomitant]
     Indication: PYREXIA

REACTIONS (1)
  - Cataract [Recovered/Resolved]
